FAERS Safety Report 10253896 (Version 1)
Quarter: 2014Q2

REPORT INFORMATION
  Report Type: Spontaneous
  Country: JP (occurrence: JP)
  Receive Date: 20140623
  Receipt Date: 20140623
  Transmission Date: 20141212
  Serious: Yes (Other)
  Sender: FDA-Public Use
  Company Number: JP-PFIZER INC-2014167398

PATIENT
  Age: 84 Year
  Sex: Female

DRUGS (1)
  1. ZITHROMAC [Suspect]
     Route: 048

REACTIONS (1)
  - Urinary bladder haemorrhage [Unknown]
